FAERS Safety Report 14183571 (Version 3)
Quarter: 2017Q4

REPORT INFORMATION
  Report Type: Report from Study
  Country: ES (occurrence: ES)
  Receive Date: 20171113
  Receipt Date: 20171122
  Transmission Date: 20180321
  Serious: Yes (Hospitalization)
  Sender: FDA-Public Use
  Company Number: ES-PFIZER INC-2017479392

PATIENT
  Age: 49 Year
  Sex: Male
  Weight: 93 kg

DRUGS (2)
  1. SANDOSTATIN LAR DEPOT [Suspect]
     Active Substance: OCTREOTIDE ACETATE
     Indication: NEUROENDOCRINE CARCINOMA
     Dosage: 30 MG, CYCLIC (30 MG/28 DAYS)
     Dates: start: 20140625
  2. AXITINIB [Suspect]
     Active Substance: AXITINIB
     Indication: NEUROENDOCRINE CARCINOMA
     Dosage: 8 MG, 2X/DAY (8 MG/12 H)
     Dates: start: 20140625, end: 20171030

REACTIONS (1)
  - Diarrhoea [Recovered/Resolved]
